FAERS Safety Report 9399260 (Version 1)
Quarter: 2013Q3

REPORT INFORMATION
  Report Type: Report from Study
  Country: DE (occurrence: DE)
  Receive Date: 20130715
  Receipt Date: 20130715
  Transmission Date: 20140515
  Serious: Yes (Death)
  Sender: FDA-Public Use
  Company Number: DE-ROCHE-785574

PATIENT
  Age: 64 Year
  Sex: Male
  Weight: 61.7 kg

DRUGS (3)
  1. BEVACIZUMAB [Suspect]
     Indication: BRONCHIAL CARCINOMA
     Route: 042
  2. PACLITAXEL [Suspect]
     Indication: BRONCHIAL CARCINOMA
     Route: 042
  3. CARBOPLATIN [Suspect]
     Indication: BRONCHIAL CARCINOMA
     Dosage: AUC 6
     Route: 042

REACTIONS (3)
  - Tumour perforation [Fatal]
  - Bronchial haemorrhage [Fatal]
  - Malignant neoplasm progression [Fatal]
